FAERS Safety Report 6118842-3 (Version None)
Quarter: 2009Q1

REPORT INFORMATION
  Report Type: 
  Country: None (occurrence: None)
  Receive Date: 20090316
  Receipt Date: 20090311
  Transmission Date: 20090719
  Serious: Yes (Hospitalization)
  Sender: FDA-Public Use
  Company Number: JP-BRISTOL-MYERS SQUIBB COMPANY-14516165

PATIENT

DRUGS (1)
  1. KENACORT [Suspect]
     Indication: MUSCULOSKELETAL PAIN
     Route: 014

REACTIONS (1)
  - CRYSTAL ARTHROPATHY [None]
